FAERS Safety Report 23897929 (Version 4)
Quarter: 2024Q2

REPORT INFORMATION
  Report Type: Spontaneous
  Country: RO (occurrence: RO)
  Receive Date: 20240524
  Receipt Date: 20240606
  Transmission Date: 20240716
  Serious: Yes (Life-Threatening, Hospitalization, Other)
  Sender: FDA-Public Use
  Company Number: RO-CHEPLA-2024006031

PATIENT
  Age: 52 Year
  Sex: Male

DRUGS (5)
  1. INDAPAMIDE [Suspect]
     Active Substance: INDAPAMIDE
     Indication: Product used for unknown indication
     Dosage: 1.5 MILLIGRAM, QD
     Route: 065
  2. CANDESARTAN [Suspect]
     Active Substance: CANDESARTAN
     Indication: Product used for unknown indication
     Dosage: 16 MILLIGRAM, QD
     Route: 065
  3. OMEPRAZOLE [Suspect]
     Active Substance: DONEPEZIL HYDROCHLORIDE\OMEPRAZOLE\OMEPRAZOLE MAGNESIUM
     Indication: Abdominal pain
     Dosage: 40 MILLIGRAM, QD
     Route: 065
  4. LOPERAMIDE [Suspect]
     Active Substance: LOPERAMIDE
     Indication: Diarrhoea
     Dosage: 8 MILLIGRAM, QD
     Route: 065
  5. ALLOPURINOL [Concomitant]
     Active Substance: ALLOPURINOL
     Indication: Product used for unknown indication
     Dosage: 200 MILLIGRAM, QD
     Route: 065

REACTIONS (45)
  - Hypovolaemia [Recovered/Resolved]
  - Crohn^s disease [Unknown]
  - Dehydration [Recovered/Resolved]
  - Renal failure [Recovered/Resolved]
  - Hypotension [Recovered/Resolved]
  - Hypokalaemia [Recovered/Resolved]
  - Renal tubular necrosis [Unknown]
  - Blood creatine phosphokinase increased [Recovered/Resolved]
  - Rhabdomyolysis [Unknown]
  - Urinary nitrogen increased [Recovered/Resolved]
  - Blood cholesterol increased [Recovered/Resolved]
  - Red blood cell sedimentation rate increased [Recovered/Resolved]
  - Renal impairment [Recovered/Resolved]
  - Breath odour [Recovered/Resolved]
  - C-reactive protein increased [Recovered/Resolved]
  - Blood bicarbonate decreased [Recovered/Resolved]
  - Protein total increased [Recovered/Resolved]
  - Tachypnoea [Recovered/Resolved]
  - Disorientation [Recovered/Resolved]
  - Weight decreased [Recovered/Resolved]
  - Haemoglobin increased [Recovered/Resolved]
  - Blood fibrinogen increased [Recovered/Resolved]
  - Alpha 2 globulin increased [Recovered/Resolved]
  - Anion gap increased [Recovered/Resolved]
  - Blood creatine phosphokinase MB increased [Recovered/Resolved]
  - Alpha 1 globulin increased [Recovered/Resolved]
  - Calcium ionised decreased [Recovered/Resolved]
  - PCO2 increased [Recovered/Resolved]
  - Peripheral coldness [Recovered/Resolved]
  - Blood albumin decreased [Recovered/Resolved]
  - Confusional state [Recovered/Resolved]
  - Blood lactate dehydrogenase increased [Recovered/Resolved]
  - Beta globulin increased [Recovered/Resolved]
  - Blood triglycerides increased [Recovered/Resolved]
  - Blood urea increased [Recovered/Resolved]
  - Blood creatinine increased [Recovered/Resolved]
  - Blood uric acid increased [Recovered/Resolved]
  - Tachycardia [Recovered/Resolved]
  - Hyponatraemia [Recovered/Resolved]
  - Gamma-glutamyltransferase increased [Recovered/Resolved]
  - Aspartate aminotransferase increased [Recovered/Resolved]
  - Alanine aminotransferase increased [Recovered/Resolved]
  - Platelet count decreased [Recovered/Resolved]
  - White blood cell count decreased [Recovered/Resolved]
  - Drug ineffective [Recovered/Resolved]
